FAERS Safety Report 15536058 (Version 1)
Quarter: 2018Q4

REPORT INFORMATION
  Report Type: Spontaneous
  Country: US (occurrence: US)
  Receive Date: 20181021
  Receipt Date: 20181021
  Transmission Date: 20190205
  Serious: Yes (Disabling)
  Sender: FDA-Public Use
  Company Number: None

PATIENT
  Age: 52 Year
  Sex: Female
  Weight: 99 kg

DRUGS (1)
  1. AIMOVIG [Suspect]
     Active Substance: ERENUMAB-AOOE
     Indication: MIGRAINE
     Dosage: ?          QUANTITY:1 INJECTION(S);OTHER FREQUENCY:ONCE A MONTH;OTHER ROUTE:INJECTION IN STOMACH?
     Dates: start: 20180901, end: 20181018

REACTIONS (6)
  - Eye pain [None]
  - Paraesthesia [None]
  - Headache [None]
  - Pain of skin [None]
  - Neck pain [None]
  - Skin burning sensation [None]

NARRATIVE: CASE EVENT DATE: 20180903
